FAERS Safety Report 9200712 (Version 3)
Quarter: 2013Q2

REPORT INFORMATION
  Report Type: Spontaneous
  Country: US (occurrence: US)
  Receive Date: 20130401
  Receipt Date: 20130515
  Transmission Date: 20140414
  Serious: Yes (Hospitalization)
  Sender: FDA-Public Use
  Company Number: US-009507513-1303USA013751

PATIENT
  Age: 43 Year
  Sex: Female

DRUGS (1)
  1. SAPHRIS [Suspect]
     Indication: SCHIZOAFFECTIVE DISORDER
     Dosage: 15, 10 MG PILLS
     Route: 048

REACTIONS (4)
  - Suicide attempt [Unknown]
  - Unresponsive to stimuli [Recovered/Resolved]
  - Speech disorder [Recovered/Resolved]
  - Intentional overdose [Unknown]
